FAERS Safety Report 7982948-4 (Version None)
Quarter: 2011Q4

REPORT INFORMATION
  Report Type: 
  Country: None (occurrence: None)
  Receive Date: 20111215
  Receipt Date: 20111205
  Transmission Date: 20120403
  Serious: Yes (Hospitalization, Other)
  Sender: FDA-Public Use
  Company Number: US-MERCK-1012USA02527

PATIENT
  Age: 58 Year
  Sex: Female

DRUGS (9)
  1. ATENOLOL [Concomitant]
     Route: 065
  2. LYSINE [Concomitant]
     Route: 065
  3. FOSAMAX [Suspect]
     Indication: OSTEOPENIA
     Route: 048
     Dates: start: 20050701, end: 20101201
  4. SYNTHROID [Concomitant]
     Route: 065
  5. VITAMIN E [Concomitant]
     Route: 065
  6. VITAMIN D (UNSPECIFIED) [Concomitant]
     Route: 065
  7. VITAMINS (UNSPECIFIED) [Concomitant]
     Route: 065
  8. MOBIC [Concomitant]
     Route: 065
  9. OSTEO-BI-FLEX [Concomitant]
     Route: 065
     Dates: start: 20060101

REACTIONS (24)
  - DIVERTICULUM [None]
  - MEDIAL TIBIAL STRESS SYNDROME [None]
  - FEMUR FRACTURE [None]
  - FALL [None]
  - RENAL DISORDER [None]
  - MENISCUS LESION [None]
  - HYPERLIPIDAEMIA [None]
  - ARTHRITIS [None]
  - DEVICE FAILURE [None]
  - TIBIA FRACTURE [None]
  - TENDONITIS [None]
  - GASTROOESOPHAGEAL REFLUX DISEASE [None]
  - HIP FRACTURE [None]
  - NEUROMA [None]
  - VITAMIN D DEFICIENCY [None]
  - FIBULA FRACTURE [None]
  - OSTEOARTHRITIS [None]
  - ARTHRALGIA [None]
  - INSOMNIA [None]
  - APPENDICITIS [None]
  - FUNCTIONAL GASTROINTESTINAL DISORDER [None]
  - PERIOSTITIS [None]
  - BACK PAIN [None]
  - FOOT FRACTURE [None]
